FAERS Safety Report 12958973 (Version 1)
Quarter: 2016Q4

REPORT INFORMATION
  Report Type: Spontaneous
  Country: US (occurrence: US)
  Receive Date: 20161117
  Receipt Date: 20161117
  Transmission Date: 20170207
  Serious: Yes (Hospitalization)
  Sender: FDA-Public Use
  Company Number: None

PATIENT
  Age: 83 Year
  Sex: Male

DRUGS (20)
  1. LEVOTHYROXINE. [Concomitant]
     Active Substance: LEVOTHYROXINE
  2. POTASSIUM PHOSPHATE [Concomitant]
     Active Substance: POTASSIUM PHOSPHATE
  3. LANSOPRAZOLE. [Concomitant]
     Active Substance: LANSOPRAZOLE
  4. VANCOMYCIN [Concomitant]
     Active Substance: VANCOMYCIN
  5. ALLOPURINOL. [Concomitant]
     Active Substance: ALLOPURINOL
  6. HEPARIN [Concomitant]
     Active Substance: HEPARIN SODIUM
  7. TERAZOSIN [Concomitant]
     Active Substance: TERAZOSIN\TERAZOSIN HYDROCHLORIDE
  8. CHOLECALCIFEROL [Concomitant]
     Active Substance: CHOLECALCIFEROL
  9. MAGNESIUM SULFATE. [Concomitant]
     Active Substance: MAGNESIUM SULFATE
  10. MULTIVITAMIN [Concomitant]
     Active Substance: VITAMINS
  11. PIPERACILLIN/TAZOBACTAM [Concomitant]
     Active Substance: PIPERACILLIN SODIUM\TAZOBACTAM SODIUM
  12. ALBUMIN [Concomitant]
     Active Substance: ALBUMIN HUMAN
  13. LACTATED RINGERS [Concomitant]
     Active Substance: CALCIUM CHLORIDE\POTASSIUM CHLORIDE\SODIUM CHLORIDE\SODIUM LACTATE
  14. METOPROLOL TARTRATE. [Concomitant]
     Active Substance: METOPROLOL TARTRATE
  15. PHYTONADIONE. [Concomitant]
     Active Substance: PHYTONADIONE
  16. RIFAXIMIN [Concomitant]
     Active Substance: RIFAXIMIN
  17. FERROUS SULFATE. [Concomitant]
     Active Substance: FERROUS SULFATE
  18. ZINC SULFATE [Concomitant]
     Active Substance: ZINC SULFATE\ZINC SULFATE ANHYDROUS
  19. IBUPROFEN. [Suspect]
     Active Substance: IBUPROFEN
     Indication: PAIN
     Route: 048
     Dates: start: 20160825, end: 20160825
  20. ASPIRIN. [Concomitant]
     Active Substance: ASPIRIN

REACTIONS (2)
  - Pyrexia [None]
  - Abdominal pain [None]

NARRATIVE: CASE EVENT DATE: 20160825
